FAERS Safety Report 10244441 (Version 1)
Quarter: 2014Q2

REPORT INFORMATION
  Report Type: Other
  Country: US (occurrence: US)
  Receive Date: 20140618
  Receipt Date: 20140618
  Transmission Date: 20141212
  Serious: Yes (Other)
  Sender: FDA-Public Use
  Company Number: US-SHIRE-US201403062

PATIENT
  Age: 24 Year
  Sex: Female

DRUGS (1)
  1. FIRAZYR [Suspect]
     Indication: HEREDITARY ANGIOEDEMA
     Dosage: 30 MG (ONE SYRINGE),MAY REPEAT UP TO THREE TIMES
     Route: 058
     Dates: start: 20140410

REACTIONS (2)
  - Catheter site infection [Unknown]
  - Dyspnoea [Unknown]
